FAERS Safety Report 6372589-7 (Version None)
Quarter: 2009Q3

REPORT INFORMATION
  Report Type: 
  Country: None (occurrence: None)
  Receive Date: 20090924
  Receipt Date: 20080917
  Transmission Date: 20100115
  Serious: Yes (Hospitalization, Other)
  Sender: FDA-Public Use
  Company Number: US-ASTRAZENECA-2008UW18317

PATIENT
  Age: 26 Year
  Sex: Male

DRUGS (9)
  1. SEROQUEL [Suspect]
     Indication: BIPOLAR DISORDER
     Route: 048
  2. SEROQUEL [Suspect]
     Indication: ALCOHOL ABUSE
     Route: 048
  3. SEROQUEL [Suspect]
     Indication: SUBSTANCE ABUSE
     Route: 048
  4. ZOLOFT [Concomitant]
     Indication: BIPOLAR DISORDER
  5. ZOLOFT [Concomitant]
     Indication: ALCOHOL ABUSE
  6. ZOLOFT [Concomitant]
     Indication: SUBSTANCE ABUSE
  7. ZIPRASIDONE HCL [Concomitant]
     Indication: BIPOLAR DISORDER
  8. ZIPRASIDONE HCL [Concomitant]
     Indication: ALCOHOL ABUSE
  9. ZIPRASIDONE HCL [Concomitant]
     Indication: SUBSTANCE ABUSE

REACTIONS (2)
  - ENZYME ABNORMALITY [None]
  - PANCREATITIS [None]
